FAERS Safety Report 6643272-5 (Version None)
Quarter: 2010Q1

REPORT INFORMATION
  Report Type: 
  Country: None (occurrence: None)
  Receive Date: 20100319
  Receipt Date: 20100308
  Transmission Date: 20100710
  Serious: Yes (Other)
  Sender: FDA-Public Use
  Company Number: US-PFIZER INC-2010029847

PATIENT
  Sex: Female

DRUGS (2)
  1. LYRICA [Suspect]
  2. GLUCOPHAGE [Suspect]

REACTIONS (2)
  - HEARING IMPAIRED [None]
  - PAIN [None]
